FAERS Safety Report 6535056-3 (Version None)
Quarter: 2010Q1

REPORT INFORMATION
  Report Type: 
  Country: None (occurrence: None)
  Receive Date: 20100111
  Receipt Date: 20100111
  Transmission Date: 20100710
  Serious: Yes (Hospitalization)
  Sender: FDA-Public Use
  Company Number: None

PATIENT
  Age: 35 Year
  Sex: Female

DRUGS (1)
  1. NUVARING [Suspect]

REACTIONS (5)
  - DEPRESSION [None]
  - IRRITABILITY [None]
  - LIBIDO DECREASED [None]
  - PANIC ATTACK [None]
  - VULVOVAGINAL PRURITUS [None]
